FAERS Safety Report 10402909 (Version 1)
Quarter: 2014Q3

REPORT INFORMATION
  Report Type: Spontaneous
  Country: FR (occurrence: FR)
  Receive Date: 20140822
  Receipt Date: 20140822
  Transmission Date: 20150326
  Serious: Yes (Hospitalization)
  Sender: FDA-Public Use
  Company Number: PHHY2014FR101499

PATIENT
  Age: 67 Year
  Sex: Male

DRUGS (9)
  1. LORAZEPAM. [Concomitant]
     Active Substance: LORAZEPAM
     Dosage: UNK UKN, UNK
  2. COLCHICINE. [Concomitant]
     Active Substance: COLCHICINE
     Dosage: UNK UKN, UNK
  3. ATENOLOL. [Suspect]
     Active Substance: ATENOLOL
     Dosage: 50 MG, QD
     Route: 048
  4. ICAZ [Suspect]
     Active Substance: ISRADIPINE
     Dosage: 5 MG, QD
     Route: 048
  5. ESIDREX [Suspect]
     Active Substance: HYDROCHLOROTHIAZIDE
     Indication: HYPERTENSION
     Dosage: 25 MG, QD
     Route: 048
     Dates: end: 20140604
  6. PANTOPRAZOLE SODIUM SESQUIHYDRATE [Concomitant]
     Active Substance: PANTOPRAZOLE SODIUM
     Dosage: UNK UKN, UNK
  7. ADENURIC [Concomitant]
     Active Substance: FEBUXOSTAT
     Dosage: UNK UKN, UNK
  8. LEVOTHYROX [Concomitant]
     Active Substance: LEVOTHYROXINE
     Dosage: UNK UKN, UNK
  9. ATENOLOL. [Suspect]
     Active Substance: ATENOLOL
     Dosage: 100 MG, QD
     Route: 048

REACTIONS (2)
  - Generalised tonic-clonic seizure [Recovered/Resolved]
  - Hypertension [Recovered/Resolved]

NARRATIVE: CASE EVENT DATE: 20140604
